FAERS Safety Report 12911116 (Version 2)
Quarter: 2016Q4

REPORT INFORMATION
  Report Type: Spontaneous
  Country: US (occurrence: US)
  Receive Date: 20161104
  Receipt Date: 20161222
  Transmission Date: 20170207
  Serious: No
  Sender: FDA-Public Use
  Company Number: US-PFIZER INC-2016512366

PATIENT
  Age: 72 Year
  Sex: Male
  Weight: 79.38 kg

DRUGS (1)
  1. SUTENT [Suspect]
     Active Substance: SUNITINIB MALATE
     Indication: RENAL CANCER STAGE IV
     Dosage: CYCLIC, 50 MG CAPSULE BY MOUTH FOR 14 DAYS THEN OFF FOR 7 DAYS AND REPEAT
     Route: 048
     Dates: start: 2016, end: 201610

REACTIONS (3)
  - Decreased appetite [Recovering/Resolving]
  - Fatigue [Recovered/Resolved]
  - Neoplasm progression [Unknown]

NARRATIVE: CASE EVENT DATE: 2016
